FAERS Safety Report 25329217 (Version 2)
Quarter: 2025Q2

REPORT INFORMATION
  Report Type: Spontaneous
  Country: AT (occurrence: AT)
  Receive Date: 20250519
  Receipt Date: 20250526
  Transmission Date: 20250716
  Serious: Yes (Death)
  Sender: CSL BEHRING
  Company Number: AT-BEH-2025205026

PATIENT
  Age: 70 Year
  Sex: Female

DRUGS (1)
  1. DIFELIKEFALIN ACETATE [Suspect]
     Active Substance: DIFELIKEFALIN ACETATE
     Indication: Product used for unknown indication
     Route: 065

REACTIONS (1)
  - Bronchial carcinoma [Fatal]
